FAERS Safety Report 21294833 (Version 1)
Quarter: 2022Q3

REPORT INFORMATION
  Report Type: Spontaneous
  Country: US (occurrence: US)
  Receive Date: 20220905
  Receipt Date: 20220905
  Transmission Date: 20221027
  Serious: Yes (Life-Threatening, Other)
  Sender: FDA-Public Use
  Company Number: US-drreddys-LIT/USA/22/0154022

PATIENT
  Age: 66 Year
  Sex: Male

DRUGS (13)
  1. DEXAMETHASONE SODIUM PHOSPHATE [Suspect]
     Active Substance: DEXAMETHASONE SODIUM PHOSPHATE
     Indication: High-grade B-cell lymphoma
     Dosage: R-DHAP REGIMEN
  2. DEXAMETHASONE SODIUM PHOSPHATE [Suspect]
     Active Substance: DEXAMETHASONE SODIUM PHOSPHATE
     Dosage: R-DHAOX REGIMEN
  3. RITUXIMAB [Suspect]
     Active Substance: RITUXIMAB
     Indication: High-grade B-cell lymphoma
     Dosage: R-CHOP REGIMEN
  4. RITUXIMAB [Suspect]
     Active Substance: RITUXIMAB
     Dosage: R-DHAP REGIMEN
  5. RITUXIMAB [Suspect]
     Active Substance: RITUXIMAB
     Dosage: R-DHAOX REGIMEN
  6. CYCLOPHOSPHAMIDE [Suspect]
     Active Substance: CYCLOPHOSPHAMIDE
     Indication: High-grade B-cell lymphoma
     Dosage: R-CHOP REGIMEN
  7. DOXORUBICIN HYDROCHLORIDE [Suspect]
     Active Substance: DOXORUBICIN HYDROCHLORIDE
     Indication: High-grade B-cell lymphoma
     Dosage: R-CHOP REGIMEN
  8. ONCOVIN [Suspect]
     Active Substance: VINCRISTINE SULFATE
     Indication: High-grade B-cell lymphoma
     Dosage: R-CHOP REGIMEN
  9. PREDNISONE [Suspect]
     Active Substance: PREDNISONE
     Indication: High-grade B-cell lymphoma
     Dosage: R-CHOP REGIMEN
  10. CISPLATIN [Suspect]
     Active Substance: CISPLATIN
     Indication: High-grade B-cell lymphoma
     Dosage: R-DHAP REGIMEN
  11. CYTARABINE [Suspect]
     Active Substance: CYTARABINE
     Indication: High-grade B-cell lymphoma
     Dosage: R-DHAP REGIMEN
  12. CYTARABINE [Suspect]
     Active Substance: CYTARABINE
     Dosage: R-DHAOX REGIMEN
  13. OXALIPLATIN [Suspect]
     Active Substance: OXALIPLATIN
     Indication: High-grade B-cell lymphoma
     Dosage: R-DHAOX REGIMEN

REACTIONS (3)
  - Drug ineffective [Unknown]
  - B-cell lymphoma [Unknown]
  - Disease progression [Unknown]
